FAERS Safety Report 5245175-X (Version None)
Quarter: 2007Q1

REPORT INFORMATION
  Report Type: 
  Country: None (occurrence: None)
  Receive Date: 20070223
  Receipt Date: 20070215
  Transmission Date: 20070707
  Serious: Yes (Hospitalization)
  Sender: FDA-Public Use
  Company Number: DE-ROCHE-480005

PATIENT
  Age: 63 Year
  Sex: Male
  Weight: 101 kg

DRUGS (13)
  1. PEG-INTERFERON ALFA 2A (RO 25-8310) [Suspect]
     Indication: HEPATITIS C
     Route: 058
     Dates: start: 20070105, end: 20070110
  2. VX-950 [Suspect]
     Indication: HEPATITIS C
     Route: 048
     Dates: start: 20070105, end: 20070110
  3. METFORMIN HCL [Concomitant]
     Route: 048
     Dates: start: 20010615
  4. DOXAZOSIN MESYLATE [Concomitant]
     Indication: HYPERTENSION
     Route: 048
     Dates: start: 20010615, end: 20070113
  5. MOXONIDINE [Concomitant]
     Indication: HYPERTENSION
     Dosage: DRUG REPORTED AS ^MOXONIDANE (MOXONIDINE)^
     Route: 048
     Dates: start: 20010615
  6. ENALAPRIL MALEATE [Concomitant]
     Route: 048
     Dates: start: 20010615
  7. MEPROLOL [Concomitant]
     Route: 048
     Dates: start: 20010615
  8. ASPIRIN [Concomitant]
     Indication: PROPHYLAXIS
     Route: 048
     Dates: start: 20010615
  9. MAGNESIUM [Concomitant]
     Dosage: TAKEN AT BEDTIME
     Route: 048
     Dates: start: 20010615
  10. PRAVASTATIN [Concomitant]
     Dosage: TAKEN AT BEDTIME
     Route: 048
     Dates: start: 20061212
  11. IBUPROFEN [Concomitant]
     Indication: BACK PAIN
     Route: 048
     Dates: start: 20010615
  12. TRAMADOL HCL [Concomitant]
     Indication: BACK PAIN
     Route: 048
     Dates: start: 20010615
  13. GLIMEPIRIDE [Concomitant]
     Route: 048
     Dates: start: 20010615

REACTIONS (10)
  - CAROTID ARTERIOSCLEROSIS [None]
  - CEREBRAL DISORDER [None]
  - DISORIENTATION [None]
  - ELECTROENCEPHALOGRAM ABNORMAL [None]
  - FALL [None]
  - HEAD INJURY [None]
  - HYPERTROPHY [None]
  - LOSS OF CONSCIOUSNESS [None]
  - SPEECH DISORDER [None]
  - SYNCOPE [None]
